FAERS Safety Report 10512673 (Version 18)
Quarter: 2019Q4

REPORT INFORMATION
  Report Type: Report from Study
  Country: CA (occurrence: CA)
  Receive Date: 20141012
  Receipt Date: 20191119
  Transmission Date: 20200122
  Serious: Yes (Other)
  Sender: FDA-Public Use
  Company Number: CA-ROCHE-1202227

PATIENT
  Age: 60 Year
  Sex: Female
  Weight: 54.4 kg

DRUGS (5)
  1. PREDNISONE. [Concomitant]
     Active Substance: PREDNISONE
  2. ACTEMRA [Suspect]
     Active Substance: TOCILIZUMAB
     Indication: RHEUMATOID ARTHRITIS
     Dosage: DOSE CHANGED TO 442 MG ONCE 4 WEEKS (NEW SCRIPT)
     Route: 042
     Dates: start: 20130116
  3. ACTEMRA [Suspect]
     Active Substance: TOCILIZUMAB
     Route: 042
     Dates: start: 20151006
  4. ACTEMRA [Suspect]
     Active Substance: TOCILIZUMAB
     Route: 042
     Dates: start: 20130829
  5. ACTEMRA [Suspect]
     Active Substance: TOCILIZUMAB
     Route: 042
     Dates: start: 20131218

REACTIONS (12)
  - Blood pressure systolic decreased [Unknown]
  - Heart rate decreased [Unknown]
  - Blood pressure increased [Unknown]
  - Hypotension [Unknown]
  - Infusion related reaction [Unknown]
  - Blood pressure decreased [Unknown]
  - Weight increased [Unknown]
  - Precancerous skin lesion [Unknown]
  - Blood pressure increased [Unknown]
  - Heart rate increased [Unknown]
  - Tooth infection [Unknown]
  - Nasopharyngitis [Not Recovered/Not Resolved]

NARRATIVE: CASE EVENT DATE: 201303
